FAERS Safety Report 20144158 (Version 2)
Quarter: 2022Q1

REPORT INFORMATION
  Report Type: Other
  Country: MX (occurrence: MX)
  Receive Date: 20211203
  Receipt Date: 20220210
  Transmission Date: 20220423
  Serious: Yes (Other)
  Sender: FDA-Public Use
  Company Number: MX-002147023-NVSC2021MX273935

PATIENT
  Age: 35 Year
  Sex: Male
  Weight: 85 kg

DRUGS (1)
  1. XOLAIR [Suspect]
     Active Substance: OMALIZUMAB
     Indication: Asthma
     Dosage: 150 MG, QD (STARTED 2 YEARS AGO)
     Route: 058
     Dates: end: 2021

REACTIONS (5)
  - Rheumatoid arthritis [Recovering/Resolving]
  - Headache [Recovering/Resolving]
  - COVID-19 [Recovering/Resolving]
  - Joint swelling [Unknown]
  - Peripheral swelling [Unknown]

NARRATIVE: CASE EVENT DATE: 20211030
